FAERS Safety Report 16480405 (Version 1)
Quarter: 2019Q2

REPORT INFORMATION
  Report Type: Report from Study
  Country: LU (occurrence: LU)
  Receive Date: 20190626
  Receipt Date: 20190626
  Transmission Date: 20190711
  Serious: Yes (Other)
  Sender: FDA-Public Use
  Company Number: LU-BEH-2019103514

PATIENT
  Age: 52 Year
  Sex: Female

DRUGS (8)
  1. HIZENTRA [Suspect]
     Active Substance: HUMAN IMMUNOGLOBULIN G
     Dosage: UNK
     Route: 058
     Dates: start: 20160620, end: 20160620
  2. LENZETTO [Concomitant]
     Dosage: 1X / DAY
     Route: 065
  3. MUCOCLEAR [SODIUM CHLORIDE] [Concomitant]
     Dosage: 1 / 2X / DAY
     Route: 065
  4. DUPHASTON [Concomitant]
     Active Substance: DYDROGESTERONE
     Dosage: ONCE 2 TABLET / DAY
     Route: 065
  5. OPATANOL [Concomitant]
     Active Substance: OLOPATADINE
     Dosage: AS NECESSARY
     Route: 065
  6. HYLO GEL [Concomitant]
     Dosage: AS NECESSARY
     Route: 065
  7. INUVAIR [Concomitant]
     Active Substance: BECLOMETHASONE DIPROPIONATE\FORMOTEROL FUMARATE
     Dosage: 100 / 6 X 2X / DAY
     Route: 065
  8. MAXITROL [Concomitant]
     Active Substance: DEXAMETHASONE\NEOMYCIN SULFATE\POLYMYXIN B SULFATE
     Dosage: AS NECESSARY
     Route: 065

REACTIONS (2)
  - Dacryocanaliculitis [Recovering/Resolving]
  - Dry eye [Recovering/Resolving]

NARRATIVE: CASE EVENT DATE: 20180303
